FAERS Safety Report 16139330 (Version 1)
Quarter: 2019Q2

REPORT INFORMATION
  Report Type: Spontaneous
  Country: FR (occurrence: FR)
  Receive Date: 20190401
  Receipt Date: 20190401
  Transmission Date: 20190711
  Serious: Yes (Hospitalization)
  Sender: FDA-Public Use
  Company Number: FR-TEVA-2019-FR-1030379

PATIENT
  Age: 40 Year
  Sex: Female
  Weight: 109 kg

DRUGS (12)
  1. SERESTA 50 MG, COMPRIM? S?CABLE [Suspect]
     Active Substance: OXAZEPAM
     Indication: ANXIETY
     Route: 048
     Dates: end: 20190214
  2. ENOXAPARINE SODIQUE ((MAMMIFERE/PORC/MUQUEUSE INTESTINALE)) [Concomitant]
     Active Substance: ENOXAPARIN SODIUM
     Indication: THROMBOSIS
     Dosage: 4000 IU (INTERNATIONAL UNIT) DAILY;
     Route: 058
  3. TERCIAN 100 MG, COMPRIM? PELLICUL? S?CABLE [Concomitant]
     Active Substance: CYAMEMAZINE
     Indication: ANXIETY
     Dosage: 300 MILLIGRAM DAILY;
     Route: 048
  4. BROMAZEPAM [Concomitant]
     Active Substance: BROMAZEPAM
     Indication: ANXIETY
     Dosage: 6 MILLIGRAM DAILY;
     Route: 048
  5. VALIUM [Suspect]
     Active Substance: DIAZEPAM
     Indication: ANXIETY
     Dosage: 20 MILLIGRAM DAILY;
     Route: 048
     Dates: end: 20190214
  6. LAROXYL [Concomitant]
     Active Substance: AMITRIPTYLINE HYDROCHLORIDE
     Indication: DEPRESSION
     Dosage: 125 MILLIGRAM DAILY;
     Route: 048
  7. TRAMADOL (CHLORHYDRATE DE) [Suspect]
     Active Substance: TRAMADOL HYDROCHLORIDE
     Indication: PAIN
     Dosage: 200 MILLIGRAM DAILY;
     Route: 048
     Dates: end: 20190214
  8. METHADONE AP-HP [Concomitant]
     Active Substance: METHADONE HYDROCHLORIDE
     Dosage: 240 MILLIGRAM DAILY;
     Route: 048
  9. PAROXETINE. [Concomitant]
     Active Substance: PAROXETINE
     Indication: DEPRESSION
     Dosage: 40 MILLIGRAM DAILY;
     Route: 048
  10. INSULINE [Concomitant]
     Active Substance: INSULIN NOS
     Route: 058
  11. ESOMEPRAZOLE. [Concomitant]
     Active Substance: ESOMEPRAZOLE MAGNESIUM
     Dosage: 40 MILLIGRAM DAILY;
     Route: 048
  12. KETAMINE [Suspect]
     Active Substance: KETAMINE
     Indication: FIBROMYALGIA
     Route: 042
     Dates: end: 20190214

REACTIONS (5)
  - Hypercapnia [Recovered/Resolved]
  - Somnolence [Recovered/Resolved]
  - Hypoxia [Recovered/Resolved]
  - Hypercapnic coma [Recovered/Resolved]
  - Respiratory acidosis [Recovered/Resolved]

NARRATIVE: CASE EVENT DATE: 20190219
